FAERS Safety Report 25582086 (Version 1)
Quarter: 2025Q3

REPORT INFORMATION
  Report Type: Spontaneous
  Country: US (occurrence: US)
  Receive Date: 20250719
  Receipt Date: 20250719
  Transmission Date: 20251020
  Serious: Yes (Other)
  Sender: AMGEN
  Company Number: US-AMGEN-USASP2025135959

PATIENT
  Age: 40 Year
  Sex: Male

DRUGS (3)
  1. RITUXIMAB [Suspect]
     Active Substance: RITUXIMAB
     Indication: Paraneoplastic syndrome
     Route: 065
  2. CYCLOPHOSPHAMIDE [Concomitant]
     Active Substance: CYCLOPHOSPHAMIDE
     Indication: Paraneoplastic syndrome
  3. HUMAN IMMUNOGLOBULIN G [Concomitant]
     Active Substance: HUMAN IMMUNOGLOBULIN G
     Indication: Paraneoplastic syndrome
     Route: 040

REACTIONS (5)
  - Gaze palsy [Not Recovered/Not Resolved]
  - Drug effective for unapproved indication [Unknown]
  - Strabismus [Recovering/Resolving]
  - Diplopia [Recovering/Resolving]
  - Off label use [Unknown]
